FAERS Safety Report 18690392 (Version 30)
Quarter: 2024Q1

REPORT INFORMATION
  Report Type: Other
  Country: CA (occurrence: None)
  Receive Date: 20210101
  Receipt Date: 20240326
  Transmission Date: 20240409
  Serious: Yes (Hospitalization, Other)
  Sender: FDA-Public Use
  Company Number: CA-ROCHE-2742895

PATIENT
  Age: 64 Year
  Sex: Female

DRUGS (16)
  1. OCREVUS [Suspect]
     Active Substance: OCRELIZUMAB
     Indication: Primary progressive multiple sclerosis
     Dosage: 300 MG AT DAY 0 AND 14, THEN 600 MG EVERY 6 MONTH
     Route: 042
     Dates: start: 20190509
  2. DALFAMPRIDINE [Suspect]
     Active Substance: DALFAMPRIDINE
     Indication: Product used for unknown indication
     Route: 065
  3. GABAPENTIN [Concomitant]
     Active Substance: GABAPENTIN
  4. ATIVAN [Concomitant]
     Active Substance: LORAZEPAM
  5. INDOMETHACIN [Concomitant]
     Active Substance: INDOMETHACIN
  6. LORAZEPAM [Concomitant]
     Active Substance: LORAZEPAM
  7. SIMVASTATIN [Concomitant]
     Active Substance: SIMVASTATIN
  8. METFORMIN [Concomitant]
     Active Substance: METFORMIN HYDROCHLORIDE
     Dates: start: 202104, end: 202105
  9. ZOCOR [Concomitant]
     Active Substance: SIMVASTATIN
  10. CITALOPRAM [Concomitant]
     Active Substance: CITALOPRAM\CITALOPRAM HYDROBROMIDE
  11. ASPIRIN [Concomitant]
     Active Substance: ASPIRIN
  12. SENNOSIDES A AND B [Concomitant]
     Active Substance: SENNOSIDES A AND B
  13. POLYETHYLENE GLYCOL 3350 [Concomitant]
     Active Substance: POLYETHYLENE GLYCOL 3350
  14. CETIRIZINE HYDROCHLORIDE [Concomitant]
     Active Substance: CETIRIZINE HYDROCHLORIDE
  15. LASIX [Concomitant]
     Active Substance: FUROSEMIDE
  16. DULOXETINE [Concomitant]
     Active Substance: DULOXETINE

REACTIONS (30)
  - Muscular weakness [Not Recovered/Not Resolved]
  - Arthralgia [Not Recovered/Not Resolved]
  - Magnetic resonance imaging abnormal [Not Recovered/Not Resolved]
  - Ileus paralytic [Unknown]
  - Adverse drug reaction [Unknown]
  - Vomiting [Recovered/Resolved]
  - Arthropathy [Unknown]
  - Liver disorder [Recovered/Resolved]
  - Gallbladder disorder [Recovered/Resolved]
  - Herpes zoster [Recovered/Resolved]
  - Gait disturbance [Not Recovered/Not Resolved]
  - Breast pain [Unknown]
  - Asthenia [Unknown]
  - Pain [Not Recovered/Not Resolved]
  - Spinal disorder [Not Recovered/Not Resolved]
  - Formication [Recovered/Resolved]
  - Hot flush [Not Recovered/Not Resolved]
  - Fatigue [Unknown]
  - Constipation [Recovered/Resolved]
  - Swelling [Not Recovered/Not Resolved]
  - Erythema [Recovered/Resolved]
  - Depressed mood [Unknown]
  - Dysphonia [Not Recovered/Not Resolved]
  - Headache [Recovering/Resolving]
  - Back pain [Recovering/Resolving]
  - Muscle disorder [Not Recovered/Not Resolved]
  - Fall [Unknown]
  - Gait disturbance [Not Recovered/Not Resolved]
  - Osteoarthritis [Not Recovered/Not Resolved]
  - Movement disorder [Not Recovered/Not Resolved]

NARRATIVE: CASE EVENT DATE: 20191120
